FAERS Safety Report 4543214-2 (Version None)
Quarter: 2005Q1

REPORT INFORMATION
  Report Type: 
  Country: None (occurrence: None)
  Receive Date: 20050103
  Receipt Date: 20041222
  Transmission Date: 20050727
  Serious: Yes (Hospitalization)
  Sender: FDA-Public Use
  Company Number: 200422387GDDC

PATIENT
  Age: 85 Year
  Sex: Male

DRUGS (5)
  1. MINIRIN [Suspect]
     Indication: URINARY INCONTINENCE
     Dosage: DOSE: UNK
     Route: 048
     Dates: start: 20041104, end: 20041118
  2. TRIMEBUTINE MALEATE [Concomitant]
     Route: 048
     Dates: end: 20041119
  3. LORAZEPAM [Concomitant]
     Route: 048
  4. MACROGOL [Concomitant]
     Dosage: DOSE: UNK
     Route: 048
     Dates: end: 20041119
  5. HEPTAMINOL [Concomitant]
     Dosage: DOSE: UNK
     Route: 048
     Dates: end: 20041119

REACTIONS (5)
  - BALANCE DISORDER [None]
  - BLOOD OSMOLARITY DECREASED [None]
  - CONFUSIONAL STATE [None]
  - DYSARTHRIA [None]
  - HYPONATRAEMIA [None]
